FAERS Safety Report 5745559-7 (Version None)
Quarter: 2008Q2

REPORT INFORMATION
  Report Type: 
  Country: None (occurrence: None)
  Receive Date: 20080521
  Receipt Date: 20080507
  Transmission Date: 20081010
  Serious: Yes (Other)
  Sender: FDA-Public Use
  Company Number: GB-GILEAD-2008-0016394

PATIENT
  Age: 28 Year
  Sex: Female

DRUGS (7)
  1. VIREAD [Suspect]
     Indication: HIV INFECTION
  2. EMTRIVA [Suspect]
     Indication: HIV INFECTION
  3. EFAVIRENZ [Suspect]
     Indication: HIV INFECTION
  4. ETHAMBUTOL HYDROCHLORIDE [Suspect]
     Indication: PULMONARY TUBERCULOSIS
  5. ISONIAZID [Suspect]
     Indication: PULMONARY TUBERCULOSIS
  6. PYRAZINAMIDE [Suspect]
     Indication: PULMONARY TUBERCULOSIS
  7. RIFAMPICIN [Suspect]
     Indication: PULMONARY TUBERCULOSIS

REACTIONS (6)
  - DRUG LEVEL INCREASED [None]
  - NAUSEA [None]
  - PULMONARY TUBERCULOSIS [None]
  - SLEEP DISORDER [None]
  - TRANSAMINASES INCREASED [None]
  - VOMITING [None]
